FAERS Safety Report 4362161-2 (Version None)
Quarter: 2004Q2

REPORT INFORMATION
  Report Type: 
  Country: None (occurrence: None)
  Receive Date: 20040518
  Receipt Date: 20040506
  Transmission Date: 20050107
  Serious: Yes (Death)
  Sender: FDA-Public Use
  Company Number: 163-20785-03110407

PATIENT
  Age: 50 Year
  Sex: Male

DRUGS (1)
  1. THALOMID [Suspect]
     Indication: METASTATIC RENAL CELL CARCINOMA
     Dosage: 1200 MG, DAILY, ORAL
     Route: 048
     Dates: start: 20030519, end: 20030814

REACTIONS (2)
  - CARDIOPULMONARY FAILURE [None]
  - MARKEDLY REDUCED DIETARY INTAKE [None]
